FAERS Safety Report 9988939 (Version 2)
Quarter: 2014Q1

REPORT INFORMATION
  Report Type: Report from Study
  Country: US (occurrence: US)
  Receive Date: 20140310
  Receipt Date: 20140310
  Transmission Date: 20141002
  Serious: No
  Sender: FDA-Public Use
  Company Number: US-ABBVIE-13P-163-1109867-00

PATIENT
  Age: 75 Year
  Sex: Female

DRUGS (16)
  1. HUMIRA [Suspect]
     Indication: COLITIS ULCERATIVE
     Dates: start: 20130523, end: 20130523
  2. HUMIRA [Suspect]
     Dates: start: 20130606, end: 20130606
  3. HUMIRA [Suspect]
  4. PROBIOTICS [Concomitant]
     Indication: PRODUCT USED FOR UNKNOWN INDICATION
  5. LIBRAX [Concomitant]
     Indication: PRODUCT USED FOR UNKNOWN INDICATION
  6. PROZAC [Concomitant]
     Indication: COLITIS ULCERATIVE
  7. OXYBUTYNIN [Concomitant]
     Indication: HYPERTONIC BLADDER
  8. UROXATRAL [Concomitant]
     Indication: URINARY RETENTION
  9. SINGULAIR [Concomitant]
     Indication: ASTHMA
     Dosage: AT BEDTIME
  10. Q VAR [Concomitant]
     Indication: ASTHMA
     Dosage: AT BEDTIME
  11. ZOCOR [Concomitant]
     Indication: BLOOD CHOLESTEROL INCREASED
     Dosage: AT SLEEP
  12. VITAMIN B-12 [Concomitant]
     Indication: PRODUCT USED FOR UNKNOWN INDICATION
  13. ALLEGRA [Concomitant]
     Indication: HYPERSENSITIVITY
  14. FIORICET [Concomitant]
     Indication: PAIN
  15. ASACOL [Concomitant]
     Indication: PRODUCT USED FOR UNKNOWN INDICATION
  16. LIBRAX [Concomitant]
     Indication: COLITIS ULCERATIVE
     Dosage: DAILY

REACTIONS (6)
  - Decreased appetite [Not Recovered/Not Resolved]
  - Nausea [Recovered/Resolved]
  - Diarrhoea [Recovered/Resolved]
  - Injection site pain [Recovering/Resolving]
  - Diarrhoea [Recovered/Resolved]
  - Nausea [Recovering/Resolving]
